FAERS Safety Report 7627548-0 (Version None)
Quarter: 2011Q3

REPORT INFORMATION
  Report Type: 
  Country: None (occurrence: None)
  Receive Date: 20110721
  Receipt Date: 20110714
  Transmission Date: 20111222
  Serious: Yes (Life-Threatening, Hospitalization)
  Sender: FDA-Public Use
  Company Number: US-TYCO HEALTHCARE/MALLINCKRODT-T201101357

PATIENT
  Sex: Male

DRUGS (10)
  1. EXALGO [Suspect]
     Indication: PAIN
  2. PERCOCET [Suspect]
     Dosage: TID
  3. ATIVAN [Concomitant]
  4. OMEPRAZOLE [Concomitant]
  5. ADDERALL 10 [Concomitant]
  6. EXALGO [Suspect]
     Indication: ARTHRITIS
     Dosage: 16 TO 24 MG PER DAY
     Route: 048
     Dates: start: 20110617, end: 20110707
  7. EXALGO [Suspect]
     Indication: SPINAL COLUMN STENOSIS
  8. NYSTATIN [Concomitant]
  9. ACTIQ [Concomitant]
  10. POTASSIUM [Concomitant]

REACTIONS (4)
  - SOMNOLENCE [None]
  - PULSE PRESSURE DECREASED [None]
  - RESPIRATORY DEPRESSION [None]
  - RESPIRATORY ARREST [None]
